FAERS Safety Report 20515094 (Version 2)
Quarter: 2022Q1

REPORT INFORMATION
  Report Type: Spontaneous
  Country: US (occurrence: US)
  Receive Date: 20220224
  Receipt Date: 20220224
  Transmission Date: 20220423
  Serious: No
  Sender: FDA-Public Use
  Company Number: US-ELI_LILLY_AND_COMPANY-US202201009882

PATIENT
  Sex: Female

DRUGS (2)
  1. HUMATROPE [Suspect]
     Active Substance: SOMATROPIN
     Dosage: UNK UNK, UNKNOWN
     Route: 065
  2. PREMARIN [Concomitant]
     Active Substance: ESTROGENS, CONJUGATED
     Indication: Growth disorder
     Dosage: 0.3 MG, DIVIDED INTO 8 DAYS
     Route: 065
     Dates: start: 2021

REACTIONS (2)
  - Drug ineffective [Unknown]
  - Incorrect dose administered [Recovered/Resolved]
